FAERS Safety Report 14127568 (Version 3)
Quarter: 2018Q1

REPORT INFORMATION
  Report Type: Spontaneous
  Country: AU (occurrence: AU)
  Receive Date: 20171026
  Receipt Date: 20180309
  Transmission Date: 20180508
  Serious: Yes (Life-Threatening, Hospitalization, Other)
  Sender: FDA-Public Use
  Company Number: AU-LUPIN PHARMACEUTICALS INC.-2017-06125

PATIENT
  Age: 13 Year
  Sex: Female

DRUGS (3)
  1. PREDNISOLONE. [Concomitant]
     Active Substance: PREDNISOLONE
     Indication: EPIGLOTTITIS
     Dosage: HIGH DOSE
     Route: 048
     Dates: start: 20170216
  2. OMEPRAZOLE. [Suspect]
     Active Substance: OMEPRAZOLE
     Indication: EPIGLOTTITIS
     Dosage: UNK
     Route: 065
     Dates: start: 20171101
  3. HYDROXYCHLOROQUINE [Interacting]
     Active Substance: HYDROXYCHLOROQUINE
     Indication: EPIGLOTTITIS
     Dosage: 400 MG, UNK
     Route: 065
     Dates: start: 20170318, end: 20170325

REACTIONS (3)
  - Epiglottitis [Recovered/Resolved]
  - Drug interaction [Recovered/Resolved]
  - Toxic epidermal necrolysis [Recovered/Resolved]

NARRATIVE: CASE EVENT DATE: 20170101
